FAERS Safety Report 8548459-2 (Version None)
Quarter: 2012Q3

REPORT INFORMATION
  Report Type: 
  Country: None (occurrence: None)
  Receive Date: 20120730
  Receipt Date: 20120719
  Transmission Date: 20120928
  Serious: Yes (Other)
  Sender: FDA-Public Use
  Company Number: US-JNJFOC-20120711596

PATIENT

DRUGS (2)
  1. DOXORUBICIN HYDROCHLORIDE [Suspect]
     Indication: NEOPLASM MALIGNANT
     Route: 042
  2. RADIOTHERAPY [Suspect]
     Indication: NEOPLASM MALIGNANT
     Dosage: HIGH DOSE-SINGLE FRACTION; 2400 CGY BETWEEN C4-T2
     Route: 065

REACTIONS (1)
  - OESOPHAGEAL STENOSIS [None]
